FAERS Safety Report 7299027-4 (Version None)
Quarter: 2011Q1

REPORT INFORMATION
  Report Type: 
  Country: None (occurrence: None)
  Receive Date: 20110217
  Receipt Date: 20110210
  Transmission Date: 20110831
  Serious: Yes (Other)
  Sender: FDA-Public Use
  Company Number: US-TEVA-266786USA

PATIENT
  Sex: Male

DRUGS (1)
  1. CLARAVIS [Suspect]
     Indication: ACNE
     Dates: start: 20100301, end: 20100901

REACTIONS (3)
  - GASTROINTESTINAL INFLAMMATION [None]
  - OESOPHAGEAL RUPTURE [None]
  - RECTAL HAEMORRHAGE [None]
